FAERS Safety Report 5043919-3 (Version None)
Quarter: 2006Q3

REPORT INFORMATION
  Report Type: 
  Country: None (occurrence: None)
  Receive Date: 20060706
  Receipt Date: 20060629
  Transmission Date: 20061208
  Serious: Yes (Other)
  Sender: FDA-Public Use
  Company Number: AU-SP-2006-01612

PATIENT
  Age: 72 Year
  Sex: Female

DRUGS (1)
  1. BCG - IT (CONNAUGHT) [Suspect]
     Indication: CARCINOMA IN SITU OF BLADDER
     Route: 043

REACTIONS (14)
  - BLOOD CREATININE INCREASED [None]
  - C-REACTIVE PROTEIN INCREASED [None]
  - FIBROSIS [None]
  - FLANK PAIN [None]
  - GRANULOMA [None]
  - HYPERTENSION [None]
  - KIDNEY FIBROSIS [None]
  - NEPHRITIS INTERSTITIAL [None]
  - PYREXIA [None]
  - PYURIA [None]
  - RED BLOOD CELL SEDIMENTATION RATE INCREASED [None]
  - RENAL TUBULAR ATROPHY [None]
  - TENDERNESS [None]
  - TUBULOINTERSTITIAL NEPHRITIS [None]
